FAERS Safety Report 24067115 (Version 1)
Quarter: 2024Q3

REPORT INFORMATION
  Report Type: Spontaneous
  Country: US (occurrence: US)
  Receive Date: 20240709
  Receipt Date: 20240709
  Transmission Date: 20241017
  Serious: No
  Sender: ROCHE
  Company Number: US-ROCHE-3567351

PATIENT
  Age: 79 Year
  Sex: Female

DRUGS (1)
  1. NUTROPIN AQ [Suspect]
     Active Substance: SOMATROPIN
     Indication: Hypopituitarism
     Dosage: UNKNOWN
     Route: 058
     Dates: start: 202404

REACTIONS (7)
  - Product dose omission issue [Unknown]
  - Drug delivery system malfunction [Unknown]
  - Drug delivery system malfunction [Unknown]
  - No adverse event [Unknown]
  - Device malfunction [Unknown]
  - Device issue [Unknown]
  - Manufacturing issue [Unknown]

NARRATIVE: CASE EVENT DATE: 20240516
